FAERS Safety Report 4983188-3 (Version None)
Quarter: 2006Q2

REPORT INFORMATION
  Report Type: 
  Country: None (occurrence: None)
  Receive Date: 20060426
  Receipt Date: 20060222
  Transmission Date: 20061013
  Serious: Yes (Hospitalization)
  Sender: FDA-Public Use
  Company Number: JP-JPN-A200600708

PATIENT
  Age: 64 Year
  Sex: Female
  Weight: 30 kg

DRUGS (4)
  1. VALTREX [Suspect]
     Indication: HERPES ZOSTER
     Dosage: 500MG THREE TIMES PER DAY
     Route: 048
     Dates: start: 20060209, end: 20060219
  2. DIGOXIN [Suspect]
     Indication: ARRHYTHMIA
     Dosage: .125MG PER DAY
     Route: 048
     Dates: start: 20060219, end: 20060219
  3. BISOPROLOL FUMARATE [Concomitant]
     Route: 048
  4. ASPIRIN [Concomitant]
     Route: 048

REACTIONS (5)
  - ANOREXIA [None]
  - DEPRESSED LEVEL OF CONSCIOUSNESS [None]
  - DISORIENTATION [None]
  - FEELING ABNORMAL [None]
  - RENAL DISORDER [None]
